FAERS Safety Report 25803157 (Version 6)
Quarter: 2025Q4

REPORT INFORMATION
  Report Type: Report from Study
  Country: JP (occurrence: JP)
  Receive Date: 20250915
  Receipt Date: 20251230
  Transmission Date: 20260117
  Serious: Yes (Hospitalization, Other)
  Sender: EISAI
  Company Number: JP-Eisai-202507191_LEQ_P_1

PATIENT
  Age: 73 Year
  Sex: Female
  Weight: 39 kg

DRUGS (5)
  1. LEQEMBI [Suspect]
     Active Substance: LECANEMAB-IRMB
     Indication: Cognitive disorder
     Route: 041
     Dates: start: 20240823, end: 20240823
  2. LEQEMBI [Suspect]
     Active Substance: LECANEMAB-IRMB
     Route: 041
     Dates: start: 20240913, end: 20240927
  3. LEQEMBI [Suspect]
     Active Substance: LECANEMAB-IRMB
     Route: 041
     Dates: start: 20241011, end: 20241011
  4. ELDECALCITOL [Concomitant]
     Active Substance: ELDECALCITOL
     Route: 048
  5. MINODRONIC ACID [Concomitant]
     Active Substance: MINODRONIC ACID
     Dosage: DOSE AND FREQUENCY UNKNOWN
     Route: 048

REACTIONS (2)
  - Amyloid related imaging abnormality-oedema/effusion [Recovered/Resolved]
  - Cerebral infarction [Recovered/Resolved]

NARRATIVE: CASE EVENT DATE: 20241015
